FAERS Safety Report 24275270 (Version 2)
Quarter: 2024Q3

REPORT INFORMATION
  Report Type: Spontaneous
  Country: US (occurrence: US)
  Receive Date: 20240903
  Receipt Date: 20240921
  Transmission Date: 20241017
  Serious: Yes (Other)
  Sender: AMNEAL
  Company Number: US-AMNEAL PHARMACEUTICALS-2024-AMRX-03129

PATIENT
  Age: 59 Year
  Sex: Male
  Weight: 104.31 kg

DRUGS (1)
  1. BUMETANIDE [Suspect]
     Active Substance: BUMETANIDE
     Indication: Product used for unknown indication
     Dosage: 01 MG, 02 TABLETS, 2 /DAY
     Route: 048
     Dates: start: 20240813, end: 20240822

REACTIONS (6)
  - Hallucination [Recovered/Resolved]
  - Use of accessory respiratory muscles [Recovering/Resolving]
  - Palpitations [Not Recovered/Not Resolved]
  - Insomnia [Not Recovered/Not Resolved]
  - Dyspnoea [Not Recovered/Not Resolved]
  - Muscle spasms [Recovering/Resolving]

NARRATIVE: CASE EVENT DATE: 20240817
